FAERS Safety Report 22381650 (Version 1)
Quarter: 2023Q2

REPORT INFORMATION
  Report Type: Spontaneous
  Country: CN (occurrence: CN)
  Receive Date: 20230530
  Receipt Date: 20230530
  Transmission Date: 20230721
  Serious: Yes (Other)
  Sender: FDA-Public Use
  Company Number: None

PATIENT
  Age: 34 Year
  Sex: Male
  Weight: 65 kg

DRUGS (2)
  1. MANNITOL [Suspect]
     Active Substance: MANNITOL
     Indication: Peripheral swelling
     Dosage: 250 ML, ONCE DAILY (DOSAGE FORM: INJECTION)
     Route: 041
     Dates: start: 20230428, end: 20230506
  2. LORATADINE [Suspect]
     Active Substance: LORATADINE
     Indication: Adverse event
     Dosage: 1 TABLET
     Route: 048
     Dates: start: 20230506

REACTIONS (3)
  - Erythema [Recovering/Resolving]
  - Condition aggravated [Recovering/Resolving]
  - Rash [Recovering/Resolving]

NARRATIVE: CASE EVENT DATE: 20230506
